FAERS Safety Report 11658079 (Version 4)
Quarter: 2015Q4

REPORT INFORMATION
  Report Type: Spontaneous
  Country: JP (occurrence: JP)
  Receive Date: 20151024
  Receipt Date: 20151125
  Transmission Date: 20160304
  Serious: Yes (Life-Threatening)
  Sender: FDA-Public Use
  Company Number: JP-AMGEN-JPNSP2015112084

PATIENT
  Age: 61 Year
  Sex: Female
  Weight: 35 kg

DRUGS (3)
  1. ENDOXAN                            /00021102/ [Suspect]
     Active Substance: CYCLOPHOSPHAMIDE
     Indication: BREAST CANCER RECURRENT
     Dosage: 650 MG, 1X/3WEEKS
     Route: 042
     Dates: start: 20150811
  2. G-LASTA [Suspect]
     Active Substance: PEGFILGRASTIM
     Indication: COLONY STIMULATING FACTOR PROPHYLAXIS
     Dosage: 3.6 MG, 1X/3WEEKS
     Route: 058
     Dates: start: 20150903
  3. FARMORUBICIN [Suspect]
     Active Substance: EPIRUBICIN HYDROCHLORIDE
     Indication: BREAST CANCER RECURRENT
     Dosage: 78 MG, 1X/3WEEKS
     Route: 042
     Dates: start: 20150811

REACTIONS (3)
  - Epistaxis [Recovered/Resolved]
  - Thrombocytopenia [Recovered/Resolved]
  - Inappropriate schedule of drug administration [Unknown]

NARRATIVE: CASE EVENT DATE: 20150909
